FAERS Safety Report 8088290-8 (Version None)
Quarter: 2012Q1

REPORT INFORMATION
  Report Type: 
  Country: None (occurrence: None)
  Receive Date: 20120128
  Receipt Date: 20110420
  Transmission Date: 20120608
  Serious: No
  Sender: FDA-Public Use
  Company Number: US-ABBOTT-11P-163-0721299-00

PATIENT
  Sex: Male
  Weight: 72.64 kg

DRUGS (6)
  1. HUMIRA [Suspect]
     Dates: start: 20100801, end: 20110301
  2. ZANTAC [Concomitant]
     Indication: URTICARIA
     Dates: start: 20100901
  3. VOLTAREN [Concomitant]
     Indication: PAIN
     Dosage: GEL
  4. VICODIN [Concomitant]
     Indication: PAIN
  5. LIDODERM [Concomitant]
     Indication: PAIN
     Route: 062
  6. HUMIRA [Suspect]
     Indication: SERONEGATIVE ARTHRITIS
     Dates: start: 20100301

REACTIONS (3)
  - URTICARIA [None]
  - DRUG INEFFECTIVE [None]
  - INJECTION SITE PAIN [None]
